FAERS Safety Report 7146130-5 (Version None)
Quarter: 2010Q4

REPORT INFORMATION
  Report Type: 
  Country: None (occurrence: None)
  Receive Date: 20101208
  Receipt Date: 20101118
  Transmission Date: 20110411
  Serious: No
  Sender: FDA-Public Use
  Company Number: US-B.I. PHARMACEUTICALS,INC./RIDGEFIELD-2010-BP-12985BP

PATIENT
  Age: 74 Year
  Sex: Female

DRUGS (13)
  1. PRADAXA [Suspect]
     Indication: ATRIAL FIBRILLATION
     Dosage: 300 MG
     Route: 048
     Dates: start: 20101109, end: 20101110
  2. PRADAXA [Suspect]
     Dosage: 150 MG
     Route: 048
     Dates: start: 20101116
  3. DIOVAN [Concomitant]
     Indication: HYPERTENSION
  4. SOTALOL HCL [Concomitant]
     Indication: ARRHYTHMIA
  5. SYNTHROID [Concomitant]
     Indication: THYROID DISORDER
  6. PRAVACHOL [Concomitant]
     Indication: BLOOD CHOLESTEROL INCREASED
  7. ZETIA [Concomitant]
     Indication: BLOOD CHOLESTEROL INCREASED
  8. LEXAPRO [Concomitant]
     Indication: SLEEP DISORDER
  9. BONIVA [Concomitant]
     Indication: OSTEOPENIA
  10. CALCIUM WITH VITAMIN D [Concomitant]
     Indication: PROPHYLAXIS
  11. COMPLEX B [Concomitant]
     Indication: PROPHYLAXIS
  12. VITAMIN D [Concomitant]
     Indication: PROPHYLAXIS
  13. CRANBERRY PILL [Concomitant]
     Indication: URINARY TRACT INFECTION

REACTIONS (6)
  - ABDOMINAL PAIN UPPER [None]
  - FAECES DISCOLOURED [None]
  - FLATULENCE [None]
  - HEADACHE [None]
  - INFLUENZA LIKE ILLNESS [None]
  - MELAENA [None]
